FAERS Safety Report 20097479 (Version 1)
Quarter: 2021Q4

REPORT INFORMATION
  Report Type: Spontaneous
  Country: FR (occurrence: FR)
  Receive Date: 20211122
  Receipt Date: 20211122
  Transmission Date: 20220303
  Serious: Yes (Other)
  Sender: FDA-Public Use
  Company Number: None

PATIENT
  Age: 64 Year
  Sex: Female
  Weight: 110 kg

DRUGS (2)
  1. MEKINIST [Suspect]
     Active Substance: TRAMETINIB DIMETHYL SULFOXIDE
     Indication: Malignant melanoma
     Dosage: 4 MG, QD
     Route: 048
     Dates: start: 20210512, end: 20211022
  2. TAFINLAR [Suspect]
     Active Substance: DABRAFENIB MESYLATE
     Indication: Malignant melanoma
     Dosage: 300 MG, QD
     Route: 048
     Dates: start: 20210512, end: 20211022

REACTIONS (2)
  - Iridocyclitis [Recovering/Resolving]
  - Infective uveitis [Recovering/Resolving]

NARRATIVE: CASE EVENT DATE: 20210801
